FAERS Safety Report 9334461 (Version 1)
Quarter: 2013Q2

REPORT INFORMATION
  Report Type: Spontaneous
  Country: US (occurrence: US)
  Receive Date: 20130606
  Receipt Date: 20130606
  Transmission Date: 20140414
  Serious: No
  Sender: FDA-Public Use
  Company Number: US-AMGEN-USASP2013033458

PATIENT
  Age: 73 Year
  Sex: Female

DRUGS (6)
  1. PROLIA [Suspect]
     Indication: PRODUCT USED FOR UNKNOWN INDICATION
     Dosage: UNK
  2. CALTRATE                           /00944201/ [Concomitant]
     Dosage: 600 UNK, UNK
  3. ATORVASTATIN [Concomitant]
  4. BENICAR [Concomitant]
  5. CENTRUM SILVER                     /02363801/ [Concomitant]
  6. ASPIRIN [Concomitant]

REACTIONS (1)
  - Bone scan abnormal [Unknown]
